FAERS Safety Report 7592001-X (Version None)
Quarter: 2011Q3

REPORT INFORMATION
  Report Type: 
  Country: None (occurrence: None)
  Receive Date: 20110705
  Receipt Date: 20110705
  Transmission Date: 20111222
  Serious: Yes (Other)
  Sender: FDA-Public Use
  Company Number: None

PATIENT
  Age: 74 Year
  Sex: Female
  Weight: 68.0396 kg

DRUGS (1)
  1. AMOXICILLIN [Suspect]
     Indication: THERAPEUTIC PROCEDURE
     Dosage: 2000 MG WHEN REQUIRED PO
     Route: 048
     Dates: start: 20110620, end: 20110620

REACTIONS (2)
  - ERYTHEMA [None]
  - PRODUCT SUBSTITUTION ISSUE [None]
